FAERS Safety Report 5465596-X (Version None)
Quarter: 2007Q3

REPORT INFORMATION
  Report Type: 
  Country: None (occurrence: None)
  Receive Date: 20070919
  Receipt Date: 20070919
  Transmission Date: 20080115
  Serious: No
  Sender: FDA-Public Use
  Company Number: None

PATIENT
  Age: 75 Year
  Sex: Female
  Weight: 58.9676 kg

DRUGS (2)
  1. VERSED [Suspect]
     Indication: SEDATION
     Dosage: VERSED 3 MG  ONE TIME  IV BOLUS
     Route: 040
     Dates: start: 20070917, end: 20070917
  2. DEMEROL [Suspect]
     Indication: ANALGESIA
     Dosage: DEMEROL 75 MG  ONE TIME IV BOLUS
     Route: 040
     Dates: start: 20070917, end: 20070917

REACTIONS (1)
  - RASH MACULO-PAPULAR [None]
